FAERS Safety Report 6792770-2 (Version None)
Quarter: 2010Q2

REPORT INFORMATION
  Report Type: 
  Country: None (occurrence: None)
  Receive Date: 20100624
  Receipt Date: 20081105
  Transmission Date: 20101027
  Serious: Yes (Hospitalization, Other)
  Sender: FDA-Public Use
  Company Number: US-PFIZER INC-2008081806

PATIENT
  Age: 56 Year
  Sex: Female

DRUGS (4)
  1. GEODON [Suspect]
     Indication: MAJOR DEPRESSION
     Route: 048
     Dates: start: 20080201
  2. EFFEXOR XR [Concomitant]
     Route: 048
  3. ZYPREXA [Concomitant]
  4. SEROQUEL [Concomitant]

REACTIONS (2)
  - DEPRESSION [None]
  - TARDIVE DYSKINESIA [None]
